FAERS Safety Report 10048480 (Version 4)
Quarter: 2014Q2

REPORT INFORMATION
  Report Type: Report from Study
  Country: US (occurrence: US)
  Receive Date: 20140331
  Receipt Date: 20140504
  Transmission Date: 20141212
  Serious: Yes (Hospitalization)
  Sender: FDA-Public Use
  Company Number: US-BRISTOL-MYERS SQUIBB COMPANY-20570479

PATIENT
  Age: 56 Year
  Sex: Male
  Weight: 125.9 kg

DRUGS (14)
  1. NIVOLUMAB [Suspect]
     Indication: RENAL CELL CARCINOMA
     Dosage: 4 DOSES
     Route: 042
     Dates: start: 20140220
  2. IPILIMUMAB [Suspect]
     Indication: RENAL CELL CARCINOMA
     Dosage: 4 DOSES
     Route: 042
     Dates: start: 20140220
  3. AMLODIPINE [Concomitant]
     Dates: start: 20100101
  4. COREG [Concomitant]
     Dates: start: 20100101
  5. DIOVAN [Concomitant]
     Dates: start: 20110101
  6. TAMSULOSIN [Concomitant]
     Dates: start: 20111015
  7. TRICOR [Concomitant]
     Dates: start: 20130901
  8. TAMIFLU [Concomitant]
     Dates: start: 20140318
  9. HEPARIN [Concomitant]
     Dates: start: 20140322
  10. IBUPROFEN [Concomitant]
     Dates: start: 20140322
  11. NORMAL SALINE [Concomitant]
     Dates: start: 20140322
  12. OXYCODONE [Concomitant]
     Dates: start: 20140322
  13. ONDANSETRON [Concomitant]
     Dates: start: 20140323
  14. TYLENOL [Concomitant]
     Dates: start: 20140318, end: 20140320

REACTIONS (1)
  - Pyrexia [Recovered/Resolved]
